FAERS Safety Report 7748950-2 (Version None)
Quarter: 2011Q3

REPORT INFORMATION
  Report Type: 
  Country: None (occurrence: None)
  Receive Date: 20110914
  Receipt Date: 20110824
  Transmission Date: 20111222
  Serious: Yes (Death, Hospitalization, Other)
  Sender: FDA-Public Use
  Company Number: JP-CEPHALON-2011002089

PATIENT
  Age: 56 Year
  Sex: Male

DRUGS (3)
  1. TREANDA [Suspect]
     Route: 042
     Dates: start: 20110118, end: 20110119
  2. TREANDA [Suspect]
     Route: 042
     Dates: start: 20110719, end: 20110720
  3. TREANDA [Suspect]
     Indication: MANTLE CELL LYMPHOMA
     Route: 042
     Dates: start: 20101227, end: 20101228

REACTIONS (7)
  - FUNGAEMIA [None]
  - DYSGEUSIA [None]
  - PYREXIA [None]
  - HAEMOPTYSIS [None]
  - PLEURISY [None]
  - STAPHYLOCOCCAL SEPSIS [None]
  - MANTLE CELL LYMPHOMA [None]
